FAERS Safety Report 15367485 (Version 1)
Quarter: 2018Q3

REPORT INFORMATION
  Report Type: Spontaneous
  Country: FR (occurrence: FR)
  Receive Date: 20180910
  Receipt Date: 20180910
  Transmission Date: 20181010
  Serious: Yes (Hospitalization)
  Sender: FDA-Public Use
  Company Number: FR-BAYER-2018-150023

PATIENT
  Age: 19 Year
  Sex: Male
  Weight: 70 kg

DRUGS (1)
  1. ASPIRINE 500 MG [Suspect]
     Active Substance: ASPIRIN
     Indication: SUICIDE ATTEMPT
     Dosage: 30 DF, ONCE
     Route: 048
     Dates: start: 20180708, end: 20180708

REACTIONS (10)
  - Drug level increased [Recovered/Resolved]
  - Respiratory rate increased [Recovered/Resolved]
  - Tachycardia [Recovered/Resolved]
  - Vomiting [Recovered/Resolved]
  - Metabolic acidosis [Recovered/Resolved]
  - Hypoacusis [Recovered/Resolved]
  - Abdominal pain [Recovered/Resolved]
  - Tinnitus [Recovered/Resolved]
  - Respiratory alkalosis [Recovered/Resolved]
  - Toxicity to various agents [Recovered/Resolved]

NARRATIVE: CASE EVENT DATE: 20180708
